FAERS Safety Report 5874952-7 (Version None)
Quarter: 2008Q3

REPORT INFORMATION
  Report Type: 
  Country: None (occurrence: None)
  Receive Date: 20080904
  Receipt Date: 20080829
  Transmission Date: 20090109
  Serious: Yes (Other)
  Sender: FDA-Public Use
  Company Number: 100#03#2008-04359

PATIENT
  Age: 71 Year
  Sex: Male

DRUGS (5)
  1. PRAVASTATIN [Suspect]
     Indication: BLOOD CHOLESTEROL INCREASED
     Dosage: ORAL
     Route: 048
     Dates: start: 20080623, end: 20080711
  2. CHLORPHENIRAMINE MALEATE [Concomitant]
  3. FLOXACILLIN SODIUM [Concomitant]
  4. PENICILLIN V POTASSIUM (PHENOXYMETHYLPENICILLIN) [Concomitant]
  5. SIMVASTATIN [Concomitant]

REACTIONS (4)
  - DIZZINESS [None]
  - NAUSEA [None]
  - PAIN [None]
  - SWELLING FACE [None]
